FAERS Safety Report 7151462-0 (Version None)
Quarter: 2010Q4

REPORT INFORMATION
  Report Type: 
  Country: None (occurrence: None)
  Receive Date: 20101123
  Receipt Date: 20100907
  Transmission Date: 20110411
  Serious: Yes (Death)
  Sender: FDA-Public Use
  Company Number: 2010S1000941

PATIENT
  Age: 81 Year
  Sex: Male

DRUGS (3)
  1. LIVALO [Suspect]
     Indication: HYPERLIPIDAEMIA
     Dosage: 2 MG; 1X; PO
     Route: 048
     Dates: start: 20070914, end: 20100827
  2. CARBEDIROL [Concomitant]
  3. EPROSARTAN MESYLATE [Concomitant]

REACTIONS (4)
  - ACIDOSIS [None]
  - ADENOSQUAMOUS CELL LUNG CANCER [None]
  - LOBAR PNEUMONIA [None]
  - SEPTIC SHOCK [None]
